FAERS Safety Report 25188961 (Version 2)
Quarter: 2025Q2

REPORT INFORMATION
  Report Type: Spontaneous
  Country: SE (occurrence: SE)
  Receive Date: 20250411
  Receipt Date: 20250428
  Transmission Date: 20250716
  Serious: Yes (Life-Threatening, Hospitalization, Other)
  Sender: Kenvue
  Company Number: None

PATIENT

DRUGS (1)
  1. IBUPROFEN [Suspect]
     Active Substance: IBUPROFEN
     Indication: Muscle injury
     Dosage: 400 MILLIGRAM, TWICE A DAY, (1 TABLET IN THE MORNING AND ONE IN THE EVENING), (FILM-COATED TABLET)
     Route: 065
     Dates: start: 20241102, end: 20250224

REACTIONS (3)
  - Acute kidney injury [Unknown]
  - Cardiac failure [Not Recovered/Not Resolved]
  - Gastric ulcer haemorrhage [Unknown]

NARRATIVE: CASE EVENT DATE: 20250224
